FAERS Safety Report 18297222 (Version 4)
Quarter: 2021Q1

REPORT INFORMATION
  Report Type: Spontaneous
  Country: DE (occurrence: DE)
  Receive Date: 20200923
  Receipt Date: 20210331
  Transmission Date: 20210419
  Serious: Yes (Other)
  Sender: FDA-Public Use
  Company Number: DE-AUROBINDO-AUR-APL-2020-048671

PATIENT
  Age: 50 Year
  Sex: Female

DRUGS (2)
  1. ZELDOX [Interacting]
     Active Substance: ZIPRASIDONE
     Indication: PRODUCT USED FOR UNKNOWN INDICATION
     Dosage: UNK
     Route: 065
     Dates: start: 2011, end: 20201115
  2. CLOPIDOGREL [Suspect]
     Active Substance: CLOPIDOGREL BISULFATE
     Indication: PRODUCT USED FOR UNKNOWN INDICATION
     Dosage: UNK
     Route: 065
     Dates: start: 2019

REACTIONS (13)
  - Left ventricular failure [Not Recovered/Not Resolved]
  - Blood lactate dehydrogenase increased [Not Recovered/Not Resolved]
  - Cardiac failure [Unknown]
  - Dyspnoea [Unknown]
  - Drug interaction [Unknown]
  - Blood creatine phosphokinase abnormal [Not Recovered/Not Resolved]
  - Cardiac disorder [Unknown]
  - Blood pressure abnormal [Unknown]
  - Weight decreased [Not Recovered/Not Resolved]
  - Hypertensive crisis [Unknown]
  - Electrocardiogram QT prolonged [Not Recovered/Not Resolved]
  - Incontinence [Unknown]
  - Muscular weakness [Unknown]

NARRATIVE: CASE EVENT DATE: 2019
